FAERS Safety Report 16730217 (Version 1)
Quarter: 2019Q3

REPORT INFORMATION
  Report Type: Report from Study
  Country: CA (occurrence: CA)
  Receive Date: 20190822
  Receipt Date: 20190822
  Transmission Date: 20191005
  Serious: Yes (Other)
  Sender: FDA-Public Use
  Company Number: CA-AMGEN-CANNI2019134830

PATIENT
  Age: 28 Year
  Sex: Female

DRUGS (1)
  1. AIMOVIG [Suspect]
     Active Substance: ERENUMAB-AOOE
     Indication: MIGRAINE
     Dosage: 140 MILLIGRAM, QMO
     Route: 058
     Dates: start: 20190730

REACTIONS (6)
  - Gingival pain [Not Recovered/Not Resolved]
  - Anxiety [Recovering/Resolving]
  - Toothache [Not Recovered/Not Resolved]
  - Panic attack [Recovering/Resolving]
  - Aphthous ulcer [Recovered/Resolved]
  - Gingival bleeding [Recovering/Resolving]
